FAERS Safety Report 6692676-3 (Version None)
Quarter: 2010Q2

REPORT INFORMATION
  Report Type: 
  Country: None (occurrence: None)
  Receive Date: 20100422
  Receipt Date: 20100409
  Transmission Date: 20101027
  Serious: Yes (Death, Hospitalization)
  Sender: FDA-Public Use
  Company Number: AU-SANOFI-AVENTIS-2010SA004449

PATIENT
  Age: 71 Year
  Sex: Male

DRUGS (8)
  1. AFLIBERCEPT [Suspect]
     Route: 042
     Dates: start: 20100115, end: 20100115
  2. AFLIBERCEPT [Suspect]
     Route: 042
     Dates: start: 20090925, end: 20090925
  3. DOCETAXEL [Suspect]
     Route: 042
     Dates: start: 20100115, end: 20100115
  4. DOCETAXEL [Suspect]
     Route: 042
     Dates: start: 20090925, end: 20090925
  5. PREDNISONE [Suspect]
     Route: 048
     Dates: start: 20090925, end: 20100121
  6. LUCRIN [Concomitant]
     Indication: HORMONE REPLACEMENT THERAPY
     Dates: start: 20060516
  7. LEVOTHYROXINE [Concomitant]
     Dates: start: 19980311
  8. OLMESARTAN MEDOXOMIL [Concomitant]
     Dates: start: 20091116

REACTIONS (2)
  - NEUTROPENIC SEPSIS [None]
  - PNEUMOTHORAX [None]
